FAERS Safety Report 10651148 (Version 1)
Quarter: 2014Q4

REPORT INFORMATION
  Report Type: Spontaneous
  Country: SE (occurrence: SE)
  Receive Date: 20141215
  Receipt Date: 20141215
  Transmission Date: 20150529
  Serious: Yes (Hospitalization)
  Sender: FDA-Public Use
  Company Number: SE-BIOGENIDEC-2014BI128416

PATIENT
  Sex: Female

DRUGS (1)
  1. TECFIDERA [Suspect]
     Active Substance: DIMETHYL FUMARATE
     Indication: MULTIPLE SCLEROSIS
     Route: 048
     Dates: start: 201408

REACTIONS (4)
  - Back pain [Not Recovered/Not Resolved]
  - Psychogenic pain disorder [Unknown]
  - Flushing [Unknown]
  - Abasia [Unknown]

NARRATIVE: CASE EVENT DATE: 201411
